FAERS Safety Report 12304455 (Version 1)
Quarter: 2016Q2

REPORT INFORMATION
  Report Type: Spontaneous
  Country: CN (occurrence: CN)
  Receive Date: 20160426
  Receipt Date: 20160426
  Transmission Date: 20160815
  Serious: Yes (Disabling)
  Sender: FDA-Public Use
  Company Number: CN-ROCHE-1744128

PATIENT
  Age: 40 Year
  Sex: Female
  Weight: 60 kg

DRUGS (7)
  1. AI DA SHENG (EPIRUBICIN) [Suspect]
     Active Substance: EPIRUBICIN
     Indication: NON-HODGKIN^S LYMPHOMA
     Route: 041
     Dates: start: 20150404, end: 20150627
  2. MABTHERA [Suspect]
     Active Substance: RITUXIMAB
     Indication: NON-HODGKIN^S LYMPHOMA
     Route: 041
     Dates: start: 20150403, end: 20150623
  3. VP-16 [Suspect]
     Active Substance: ETOPOSIDE
     Indication: NON-HODGKIN^S LYMPHOMA
     Route: 041
     Dates: start: 20150404, end: 20150627
  4. XIAIKE [Suspect]
     Active Substance: VINDESINE
     Indication: NON-HODGKIN^S LYMPHOMA
     Route: 042
     Dates: start: 20150404, end: 20150624
  5. CYCLOPHOSPHAMIDE. [Suspect]
     Active Substance: CYCLOPHOSPHAMIDE
     Indication: NON-HODGKIN^S LYMPHOMA
     Route: 041
     Dates: start: 20150408, end: 20150628
  6. PREDNISONE. [Concomitant]
     Active Substance: PREDNISONE
     Indication: NON-HODGKIN^S LYMPHOMA
     Route: 065
     Dates: start: 20150404, end: 20150628
  7. METHOTREXATE [Concomitant]
     Active Substance: METHOTREXATE
     Indication: NON-HODGKIN^S LYMPHOMA
     Route: 037

REACTIONS (1)
  - Bone marrow failure [Recovering/Resolving]

NARRATIVE: CASE EVENT DATE: 20150703
